FAERS Safety Report 25144495 (Version 1)
Quarter: 2025Q2

REPORT INFORMATION
  Report Type: Spontaneous
  Country: US (occurrence: US)
  Receive Date: 20250401
  Receipt Date: 20250401
  Transmission Date: 20250716
  Serious: Yes (Other)
  Sender: CALLIDITAS THERAPEUTICS
  Company Number: US-Calliditas-2025CAL00822

PATIENT
  Age: 47 Year
  Sex: Male

DRUGS (8)
  1. TARPEYO [Suspect]
     Active Substance: BUDESONIDE
     Indication: IgA nephropathy
     Route: 048
     Dates: start: 20250307
  2. LISINOPRIL [Concomitant]
     Active Substance: LISINOPRIL
  3. AMLODIPINE [Concomitant]
     Active Substance: AMLODIPINE BESYLATE
  4. KERENDIA [Concomitant]
     Active Substance: FINERENONE
  5. FILSPARI [Concomitant]
     Active Substance: SPARSENTAN
  6. FOLIC ACID [Concomitant]
     Active Substance: FOLIC ACID
  7. VITAMIN D3 [Concomitant]
     Active Substance: CHOLECALCIFEROL
  8. RAYALDEE [Concomitant]
     Active Substance: CALCIFEDIOL

REACTIONS (3)
  - End stage renal disease [Unknown]
  - Dialysis [Unknown]
  - Drug ineffective [Unknown]
